FAERS Safety Report 14043450 (Version 1)
Quarter: 2017Q4

REPORT INFORMATION
  Report Type: Spontaneous
  Country: US (occurrence: US)
  Receive Date: 20171004
  Receipt Date: 20171004
  Transmission Date: 20180321
  Serious: No
  Sender: FDA-Public Use
  Company Number: US-PFIZER INC-2017427663

PATIENT
  Sex: Female

DRUGS (2)
  1. LYRICA [Suspect]
     Active Substance: PREGABALIN
     Dosage: 2 CAPSULES A DAY, (2 A DAY)
  2. LYRICA [Suspect]
     Active Substance: PREGABALIN
     Dosage: 1 CAPSULE A DAY

REACTIONS (1)
  - Musculoskeletal pain [Unknown]
